FAERS Safety Report 5803023-0 (Version None)
Quarter: 2008Q3

REPORT INFORMATION
  Report Type: 
  Country: None (occurrence: None)
  Receive Date: 20080708
  Receipt Date: 20080627
  Transmission Date: 20090109
  Serious: Yes (Hospitalization, Other)
  Sender: FDA-Public Use
  Company Number: AU-JNJFOC-20080605735

PATIENT
  Sex: Male

DRUGS (6)
  1. TMC114 [Suspect]
     Route: 048
  2. TMC114 [Suspect]
     Indication: HIV INFECTION
     Route: 048
  3. RITONAVIR [Suspect]
     Indication: HIV INFECTION
  4. TENOFOVIR [Concomitant]
     Indication: HIV INFECTION
  5. LAMIVUDINE [Concomitant]
     Indication: HIV INFECTION
  6. ENFUVIRTIDE [Concomitant]
     Indication: HIV INFECTION

REACTIONS (1)
  - CALCULUS URETERIC [None]
